FAERS Safety Report 10072570 (Version 1)
Quarter: 2014Q2

REPORT INFORMATION
  Report Type: Spontaneous
  Country: US (occurrence: None)
  Receive Date: 20140410
  Receipt Date: 20140410
  Transmission Date: 20141212
  Serious: Yes (Life-Threatening)
  Sender: FDA-Public Use
  Company Number: None

PATIENT
  Age: 60 Year
  Sex: Male
  Weight: 105.5 kg

DRUGS (1)
  1. ALPRAZOLAM [Suspect]
     Indication: AGITATION
     Dates: start: 20140117, end: 20140117

REACTIONS (1)
  - Respiratory depression [None]
